FAERS Safety Report 8558496-X (Version None)
Quarter: 2012Q3

REPORT INFORMATION
  Report Type: 
  Country: None (occurrence: None)
  Receive Date: 20120801
  Receipt Date: 20120723
  Transmission Date: 20120928
  Serious: Yes (Hospitalization, Other)
  Sender: FDA-Public Use
  Company Number: US-ELI_LILLY_AND_COMPANY-US201109006296

PATIENT
  Sex: Female

DRUGS (12)
  1. FORTEO [Suspect]
     Dosage: 20 UG, QD
     Route: 058
  2. FORTEO [Suspect]
     Dosage: 20 UG, QD
  3. VITAMIN D [Concomitant]
  4. CALCIUM [Concomitant]
  5. GARLIC [Concomitant]
  6. VITAMIN B1 TAB [Concomitant]
  7. FORTEO [Suspect]
     Indication: OSTEOPOROSIS
     Dosage: 20 UG, QD
     Route: 058
     Dates: start: 20110202
  8. FORTEO [Suspect]
     Dosage: 20 UG, QD
     Route: 058
  9. FORTEO [Suspect]
     Dosage: 20 UG, QD
     Route: 058
  10. ENALAPRIL MALEATE [Concomitant]
  11. MAGNESIUM [Concomitant]
  12. FORTEO [Suspect]
     Dosage: 20 UG, QD
     Route: 058

REACTIONS (9)
  - VASCULAR OCCLUSION [None]
  - BLOOD SODIUM DECREASED [None]
  - JOINT SWELLING [None]
  - LOWER LIMB FRACTURE [None]
  - BLOOD CHLORIDE DECREASED [None]
  - ARTHRALGIA [None]
  - ARTHRITIS [None]
  - PERIPHERAL COLDNESS [None]
  - FALL [None]
